FAERS Safety Report 24422524 (Version 1)
Quarter: 2024Q4

REPORT INFORMATION
  Report Type: Spontaneous
  Country: US (occurrence: None)
  Receive Date: 20241009
  Receipt Date: 20241009
  Transmission Date: 20250115
  Serious: Yes (unspecified)
  Sender: Public
  Company Number: None

PATIENT
  Age: 44 Year
  Sex: Female

DRUGS (1)
  1. IRON DEXTRAN [Suspect]
     Active Substance: IRON DEXTRAN
     Dosage: OTHER FREQUENCY : ONCE;?
     Route: 042
     Dates: start: 20240320, end: 20240320

REACTIONS (2)
  - Drug hypersensitivity [None]
  - Sedation [None]

NARRATIVE: CASE EVENT DATE: 20240320
